FAERS Safety Report 17674427 (Version 1)
Quarter: 2020Q2

REPORT INFORMATION
  Report Type: Spontaneous
  Country: US (occurrence: US)
  Receive Date: 20200415
  Receipt Date: 20200415
  Transmission Date: 20200714
  Serious: No
  Sender: FDA-Public Use
  Company Number: None

PATIENT
  Sex: Female

DRUGS (2)
  1. VERZENIO [Suspect]
     Active Substance: ABEMACICLIB
     Indication: DIPLOPIA
     Route: 048
     Dates: start: 20200220
  2. VERZENIO [Suspect]
     Active Substance: ABEMACICLIB
     Indication: DYSPHAGIA
     Route: 048
     Dates: start: 20200220

REACTIONS (2)
  - Chills [None]
  - Neutrophil count decreased [None]
